FAERS Safety Report 6807355-9 (Version None)
Quarter: 2010Q2

REPORT INFORMATION
  Report Type: 
  Country: None (occurrence: None)
  Receive Date: 20100629
  Receipt Date: 20080925
  Transmission Date: 20101027
  Serious: No
  Sender: FDA-Public Use
  Company Number: US-PFIZER INC-2008073793

PATIENT
  Age: 50 Year
  Sex: Female
  Weight: 48.53 kg

DRUGS (9)
  1. XANAX [Suspect]
     Indication: PARKINSON'S DISEASE
     Dates: start: 20070101
  2. ACETAMINOPHEN [Suspect]
     Indication: PAIN
     Route: 048
     Dates: start: 20080725, end: 20080804
  3. TOPROL-XL [Suspect]
     Indication: PARKINSON'S DISEASE
     Dates: start: 20070101
  4. PREVACID [Suspect]
     Indication: GASTROOESOPHAGEAL REFLUX DISEASE
     Dates: start: 20060101
  5. CENTRUM SILVER [Concomitant]
     Indication: ROUTINE HEALTH MAINTENANCE
  6. FOLATE SODIUM [Concomitant]
     Indication: NEUROPATHY PERIPHERAL
     Dates: start: 20070101
  7. VITACAL [Concomitant]
     Indication: BONE DISORDER
     Dates: start: 20070101
  8. ALL OTHER THERAPEUTIC PRODUCTS [Concomitant]
     Indication: GASTROINTESTINAL INFECTION
     Dates: start: 20080401
  9. PSYLLIUM HYDROPHILIC MUCILLOID [Concomitant]
     Indication: GASTROINTESTINAL DISORDER
     Dates: start: 20070101

REACTIONS (1)
  - VOMITING [None]
